FAERS Safety Report 16961934 (Version 1)
Quarter: 2019Q4

REPORT INFORMATION
  Report Type: Spontaneous
  Country: US (occurrence: US)
  Receive Date: 20191024
  Receipt Date: 20191024
  Transmission Date: 20200122
  Serious: Yes (Hospitalization)
  Sender: FDA-Public Use
  Company Number: None

PATIENT
  Age: 52 Year
  Sex: Female

DRUGS (11)
  1. VIMPAT [Concomitant]
     Active Substance: LACOSAMIDE
  2. NEXIUM [Concomitant]
     Active Substance: ESOMEPRAZOLE MAGNESIUM
  3. BUSPIRONE 10 MG [Concomitant]
  4. LEXAPRO [Suspect]
     Active Substance: ESCITALOPRAM OXALATE
  5. TRAZODONE [Concomitant]
     Active Substance: TRAZODONE HYDROCHLORIDE
  6. TRILEPTAL [Concomitant]
     Active Substance: OXCARBAZEPINE
  7. LOPRESSOR [Concomitant]
     Active Substance: METOPROLOL TARTRATE
  8. SEROQUEL XR [Suspect]
     Active Substance: QUETIAPINE FUMARATE
  9. KEPPRA [Concomitant]
     Active Substance: LEVETIRACETAM
  10. GABAPENTIN 600MG [Concomitant]
     Active Substance: GABAPENTIN
  11. CLOPIDOGREL [Concomitant]
     Active Substance: CLOPIDOGREL BISULFATE

REACTIONS (2)
  - Intentional overdose [None]
  - Family stress [None]

NARRATIVE: CASE EVENT DATE: 20190728
